FAERS Safety Report 6246779-8 (Version None)
Quarter: 2009Q2

REPORT INFORMATION
  Report Type: 
  Country: None (occurrence: None)
  Receive Date: 20090626
  Receipt Date: 20090618
  Transmission Date: 20091009
  Serious: Yes (Other)
  Sender: FDA-Public Use
  Company Number: US-ASTRAZENECA-2008UW24465

PATIENT
  Age: 50 Year
  Sex: Female
  Weight: 93.9 kg

DRUGS (9)
  1. SEROQUEL [Suspect]
     Indication: INSOMNIA
     Route: 048
     Dates: start: 20040101, end: 20050101
  2. SEROQUEL [Suspect]
     Indication: BIPOLAR DISORDER
     Route: 048
     Dates: start: 20040101, end: 20050101
  3. SEROQUEL [Suspect]
     Route: 048
     Dates: start: 20070101, end: 20080101
  4. SEROQUEL [Suspect]
     Route: 048
     Dates: start: 20070101, end: 20080101
  5. DEPAKOTE [Concomitant]
  6. BUSPIRONE HCL [Concomitant]
  7. CYCLOBENZAPRINE [Concomitant]
  8. DIVALPROEX SODIUM [Concomitant]
  9. LORAZEPAM [Concomitant]

REACTIONS (6)
  - ARTHRITIS [None]
  - BLOOD CHOLESTEROL INCREASED [None]
  - FIBROMYALGIA [None]
  - MUSCLE SPASMS [None]
  - SURGERY [None]
  - TYPE 2 DIABETES MELLITUS [None]
